FAERS Safety Report 6047518-6 (Version None)
Quarter: 2009Q1

REPORT INFORMATION
  Report Type: 
  Country: None (occurrence: None)
  Receive Date: 20090122
  Receipt Date: 20090113
  Transmission Date: 20090719
  Serious: Yes (Death, Hospitalization)
  Sender: FDA-Public Use
  Company Number: CA-ABBOTT-09P-028-0496398-00

PATIENT
  Sex: Male

DRUGS (6)
  1. LUPRON DEPOT [Suspect]
     Indication: PROSTATE CANCER
     Dates: start: 20061027, end: 20081017
  2. TICLOPIDINE HCL [Concomitant]
     Indication: CEREBROVASCULAR ACCIDENT PROPHYLAXIS
     Dates: start: 19950101
  3. MULTI-VITAMIN [Concomitant]
     Indication: DRUG USE FOR UNKNOWN INDICATION
  4. ASCORBIC ACID [Concomitant]
     Indication: DRUG USE FOR UNKNOWN INDICATION
  5. ARICEPT [Concomitant]
     Indication: DRUG USE FOR UNKNOWN INDICATION
  6. ARICEPT [Concomitant]

REACTIONS (3)
  - AGITATION [None]
  - COMA [None]
  - GENERAL PHYSICAL HEALTH DETERIORATION [None]
